FAERS Safety Report 6988350-6 (Version None)
Quarter: 2010Q3

REPORT INFORMATION
  Report Type: 
  Country: None (occurrence: None)
  Receive Date: 20100914
  Receipt Date: 20100901
  Transmission Date: 20110219
  Serious: Yes (Other)
  Sender: FDA-Public Use
  Company Number: 2010AP001878

PATIENT
  Sex: Female

DRUGS (6)
  1. AMLODIPINE BESYLATE [Suspect]
     Indication: HYPERTENSION
     Dates: start: 20050101
  2. DARUNAVIR (DARUNAVIR) [Suspect]
     Indication: HIV INFECTION
     Dosage: 800 MG; QD
     Route: 048
     Dates: start: 20090920, end: 20100511
  3. RITONAVIR [Suspect]
     Indication: HIV INFECTION
     Dosage: 100 MG;PO;QD
     Route: 048
  4. ABACAVIR [Concomitant]
  5. LAMIVUDINE (LAMIVUDINE) [Concomitant]
  6. DOXAZOSIN MESYLATE [Concomitant]

REACTIONS (9)
  - AIDS RETINOPATHY [None]
  - BONE MARROW FAILURE [None]
  - CYTOMEGALOVIRUS CHORIORETINITIS [None]
  - DRUG INTERACTION [None]
  - EOSINOPHIL COUNT INCREASED [None]
  - HIV INFECTION [None]
  - OEDEMA PERIPHERAL [None]
  - PNEUMOCYSTIS JIROVECI PNEUMONIA [None]
  - STRONGYLOIDIASIS [None]
